FAERS Safety Report 4425134-7 (Version None)
Quarter: 2004Q3

REPORT INFORMATION
  Report Type: 
  Country: None (occurrence: None)
  Receive Date: 20040811
  Receipt Date: 20040811
  Transmission Date: 20050211
  Serious: No
  Sender: FDA-Public Use
  Company Number: None

PATIENT
  Age: 75 Year
  Sex: Male
  Weight: 104 kg

DRUGS (2)
  1. ASPIRIN [Suspect]
     Dosage: 1 QD ORAL
     Route: 048
     Dates: start: 20040114, end: 20040514
  2. NAPROSYN [Suspect]
     Dosage: 500 MG BID ORAL
     Route: 048
     Dates: start: 20040114, end: 20040514

REACTIONS (1)
  - LOWER GASTROINTESTINAL HAEMORRHAGE [None]
